FAERS Safety Report 17881401 (Version 1)
Quarter: 2020Q2

REPORT INFORMATION
  Report Type: Spontaneous
  Country: US (occurrence: US)
  Receive Date: 20200610
  Receipt Date: 20200610
  Transmission Date: 20200714
  Serious: No
  Sender: FDA-Public Use
  Company Number: US-COLLEGIUM PHARMACEUTICAL, INC.-2019CGM00157

PATIENT
  Age: 61 Year
  Sex: Female
  Weight: 120.18 kg

DRUGS (22)
  1. LAMOTRIGINE. [Concomitant]
     Active Substance: LAMOTRIGINE
     Dosage: 150 MG, 2X/DAY
     Route: 048
  2. ^DICYCIOMINE^ [Concomitant]
     Dosage: 20 MG, 2X/DAY
     Route: 048
  3. FUROSEMIDE. [Concomitant]
     Active Substance: FUROSEMIDE
     Dosage: 40 MG, 1X/DAY
     Route: 048
     Dates: start: 201809
  4. ALPRAZOLAM. [Concomitant]
     Active Substance: ALPRAZOLAM
     Dosage: 1 MG, 1X/DAY AT NIGHT
     Route: 048
  5. ^TRECEVIA^ [Concomitant]
     Dosage: 50 U, 1X/DAY
     Route: 058
     Dates: start: 201809
  6. GENERIC MUCINEX [Concomitant]
     Dosage: 1 TABLETS, 2X/DAY (MORNING AND NIGHT)
     Route: 048
  7. XTAMPZA ER [Suspect]
     Active Substance: OXYCODONE
     Indication: PAIN
     Dosage: 13.5 MG, 2X/DAY (MORNING AND NIGHT)
     Route: 048
     Dates: start: 201812, end: 2019
  8. XTAMPZA ER [Suspect]
     Active Substance: OXYCODONE
     Indication: BACK PAIN
  9. LYRICA [Suspect]
     Active Substance: PREGABALIN
     Indication: SPINAL OPERATION
     Dosage: 150 MG, 2X/DAY (MORNING AND NIGHT)
     Route: 048
     Dates: start: 201809
  10. MONTELUKAST [Concomitant]
     Active Substance: MONTELUKAST SODIUM
     Dosage: 100 MG, 1X/DAY
     Route: 048
     Dates: start: 201901
  11. LISINOPRIL. [Concomitant]
     Active Substance: LISINOPRIL
     Dosage: 2.5 MG, 1X/DAY
     Route: 048
  12. BENADRYL HCL [Concomitant]
     Dosage: 25 MG, 1X/DAY AT NIGHT
     Route: 048
  13. LYRICA [Suspect]
     Active Substance: PREGABALIN
     Indication: INTERVERTEBRAL DISC DEGENERATION
  14. RANITIDINE. [Concomitant]
     Active Substance: RANITIDINE
     Dosage: 150 MG, 2X/DAY
     Route: 048
  15. ^VIRTOZA^ [Concomitant]
     Dosage: 2.8 U, 1X/DAY
     Route: 058
     Dates: start: 201809
  16. STOOL SOFTENER (DOCUSATE) [Concomitant]
     Active Substance: DOCUSATE
     Dosage: 1 CAPSULES, 1X/DAY AT NIGHT
     Route: 048
  17. SERTRALINE [Concomitant]
     Active Substance: SERTRALINE HYDROCHLORIDE
     Dosage: 100 MG, 1X/DAY
     Route: 048
  18. ADVAIR DISK [Concomitant]
     Dosage: 1 DOSAGE UNITS, 2X/DAY
  19. FUROSEMIDE. [Concomitant]
     Active Substance: FUROSEMIDE
     Dosage: 20 MG, 1X/DAY
     Route: 048
     Dates: start: 201809
  20. LYRICA [Suspect]
     Active Substance: PREGABALIN
     Indication: FIBROMYALGIA
  21. VITAMIN D2 [Concomitant]
     Active Substance: ERGOCALCIFEROL
     Dosage: 50000 IU, 1X/WEEK EVERY FRIDAY
     Route: 048
     Dates: start: 201801
  22. ALPRAZOLAM. [Concomitant]
     Active Substance: ALPRAZOLAM
     Dosage: 0.5 MG, 1X/DAY IN MORNING
     Route: 048

REACTIONS (3)
  - Therapeutic product effect decreased [Not Recovered/Not Resolved]
  - Product dose omission [Not Recovered/Not Resolved]
  - Neck pain [Not Recovered/Not Resolved]

NARRATIVE: CASE EVENT DATE: 2019
